FAERS Safety Report 4809820-2 (Version None)
Quarter: 2005Q4

REPORT INFORMATION
  Report Type: 
  Country: None (occurrence: None)
  Receive Date: 20051024
  Receipt Date: 20051011
  Transmission Date: 20060501
  Serious: Yes (Other)
  Sender: FDA-Public Use
  Company Number: 2005141691

PATIENT
  Age: 83 Year
  Sex: Female
  Weight: 69.4003 kg

DRUGS (6)
  1. DETROL LA [Suspect]
     Indication: HYPERTONIC BLADDER
     Dosage: 4 MG (4 MG, 1 IN 1 D), ORAL
     Route: 048
     Dates: start: 20050802
  2. PLAVIX [Concomitant]
  3. ESTER-C (CALCIUM ASCORBATE) [Concomitant]
  4. VITAMIN B COMPLEX (CALCIUM PANTOTHENATE, NICOTINAMIDE, PYRIDOXINE HYDR [Concomitant]
  5. LECITHIN (LECITHIN) [Concomitant]
  6. CALCIUM (CALCIUM) [Concomitant]

REACTIONS (3)
  - ACCIDENT [None]
  - DRUG INEFFECTIVE [None]
  - FOOT FRACTURE [None]
